FAERS Safety Report 7409279-5 (Version None)
Quarter: 2011Q2

REPORT INFORMATION
  Report Type: 
  Country: None (occurrence: None)
  Receive Date: 20110412
  Receipt Date: 20110407
  Transmission Date: 20111010
  Serious: Yes (Congenital Anomaly)
  Sender: FDA-Public Use
  Company Number: A0922285A

PATIENT
  Sex: Female

DRUGS (9)
  1. PREVACID [Concomitant]
     Route: 064
  2. ASPIRIN [Concomitant]
     Route: 064
  3. FLAX OIL [Concomitant]
     Route: 064
  4. MICRO-K [Concomitant]
     Route: 064
  5. PROCARDIA XL [Concomitant]
     Route: 064
  6. PAXIL [Suspect]
     Dosage: 20MG PER DAY
     Route: 064
  7. MAGNESIUM SULFATE [Concomitant]
     Route: 064
  8. PRENATAL VITAMINS [Concomitant]
     Route: 064
  9. BRETHINE [Concomitant]
     Route: 064

REACTIONS (2)
  - CLEFT LIP AND PALATE [None]
  - DRUG EXPOSURE DURING PREGNANCY [None]
